FAERS Safety Report 8311121-5 (Version None)
Quarter: 2012Q2

REPORT INFORMATION
  Report Type: 
  Country: None (occurrence: None)
  Receive Date: 20120425
  Receipt Date: 20120322
  Transmission Date: 20120825
  Serious: No
  Sender: FDA-Public Use
  Company Number: US-MYLANLABS-2012S1005895

PATIENT
  Age: 52 Year
  Sex: Female

DRUGS (4)
  1. HIPREX [Concomitant]
     Indication: PROPHYLAXIS URINARY TRACT INFECTION
  2. ALFUZOSIN HYDROCHLORIDE [Suspect]
     Indication: URINARY RETENTION
     Route: 048
     Dates: start: 20120120, end: 20120312
  3. ASCORBIC ACID [Concomitant]
     Indication: PROPHYLAXIS URINARY TRACT INFECTION
  4. PROBIOTIC [Concomitant]
     Indication: PROPHYLAXIS URINARY TRACT INFECTION

REACTIONS (2)
  - DRUG INEFFECTIVE [None]
  - URINARY RETENTION [None]
